FAERS Safety Report 23371208 (Version 1)
Quarter: 2024Q1

REPORT INFORMATION
  Report Type: Spontaneous
  Country: US (occurrence: US)
  Receive Date: 20240105
  Receipt Date: 20240105
  Transmission Date: 20240409
  Serious: Yes (Other)
  Sender: FDA-Public Use
  Company Number: US-009507513-2401USA000615

PATIENT
  Age: 70 Year
  Sex: Female

DRUGS (9)
  1. TEMODAR [Suspect]
     Active Substance: TEMOZOLOMIDE
     Indication: Leiomyosarcoma
     Dosage: UNK
     Dates: start: 20231010, end: 20231101
  2. TEMODAR [Suspect]
     Active Substance: TEMOZOLOMIDE
     Dosage: UNK
     Dates: start: 20231116
  3. CABOMETYX [Suspect]
     Active Substance: CABOZANTINIB S-MALATE
     Indication: Leiomyosarcoma
     Dosage: 40 MILLIGRAM, QD
     Dates: start: 20231010, end: 20231113
  4. CABOMETYX [Suspect]
     Active Substance: CABOZANTINIB S-MALATE
     Dosage: 40 MILLIGRAM, QD
     Dates: start: 20231116
  5. DEXAMETHASONE [Concomitant]
     Active Substance: DEXAMETHASONE
  6. ONDANSETRON [Concomitant]
     Active Substance: ONDANSETRON
  7. PROCHLORPERAZINE [Concomitant]
     Active Substance: PROCHLORPERAZINE
  8. RESTASIS [Concomitant]
     Active Substance: CYCLOSPORINE
  9. PROBIOTICS NOS [Concomitant]
     Active Substance: PROBIOTICS NOS

REACTIONS (11)
  - Thrombocytopenia [Recovered/Resolved]
  - Glossodynia [Unknown]
  - Contusion [Unknown]
  - Tenderness [Unknown]
  - Taste disorder [Unknown]
  - Hyperaesthesia [Unknown]
  - Dyspepsia [Unknown]
  - Headache [Recovered/Resolved]
  - Constipation [Recovered/Resolved]
  - Somnolence [Unknown]
  - Product use in unapproved indication [Unknown]

NARRATIVE: CASE EVENT DATE: 20230101
